FAERS Safety Report 5856413-4 (Version None)
Quarter: 2008Q3

REPORT INFORMATION
  Report Type: 
  Country: None (occurrence: None)
  Receive Date: 20080822
  Receipt Date: 20080822
  Transmission Date: 20090109
  Serious: Yes (Disabling)
  Sender: FDA-Public Use
  Company Number: None

PATIENT
  Age: 74 Year
  Sex: Female
  Weight: 105.6881 kg

DRUGS (1)
  1. JANUVIA [Suspect]
     Indication: TYPE 2 DIABETES MELLITUS
     Dosage: 100MG 1 A DAY
     Dates: start: 20070530, end: 20070618

REACTIONS (3)
  - DYSPHAGIA [None]
  - SALIVARY HYPERSECRETION [None]
  - TONGUE DISORDER [None]
